FAERS Safety Report 6282773-9 (Version None)
Quarter: 2009Q3

REPORT INFORMATION
  Report Type: 
  Country: None (occurrence: None)
  Receive Date: 20090724
  Receipt Date: 20090721
  Transmission Date: 20100115
  Serious: Yes (Hospitalization)
  Sender: FDA-Public Use
  Company Number: GB-PFIZER INC-2009243313

PATIENT

DRUGS (1)
  1. ATORVASTATIN CALCIUM [Suspect]
     Dosage: 80 MG, UNK

REACTIONS (1)
  - RENAL FAILURE [None]
